FAERS Safety Report 9431957 (Version 3)
Quarter: 2014Q2

REPORT INFORMATION
  Report Type: Spontaneous
  Country: IT (occurrence: IT)
  Receive Date: 20130731
  Receipt Date: 20140421
  Transmission Date: 20141212
  Serious: Yes (Other)
  Sender: FDA-Public Use
  Company Number: IT-BRISTOL-MYERS SQUIBB COMPANY-19144625

PATIENT
  Age: 85 Year
  Sex: Female

DRUGS (11)
  1. COUMADIN TABS 5 MG [Suspect]
     Indication: ATRIAL FIBRILLATION
     Route: 048
     Dates: start: 20130101, end: 20130527
  2. BISOPROLOL HEMIFUMARATE [Concomitant]
     Route: 048
  3. SEREUPIN [Concomitant]
     Dosage: TABS
  4. TAVOR [Concomitant]
     Dosage: TABS
  5. ZYLORIC [Concomitant]
     Dosage: TABS
  6. PANTORC [Concomitant]
     Dosage: TABS
  7. EUTIROX [Concomitant]
     Dosage: TABS
  8. LASIX [Concomitant]
     Dosage: TABS
  9. LACIREX [Concomitant]
     Dosage: TABS
  10. LANOXIN [Concomitant]
     Dosage: TABS
  11. RATACAND [Concomitant]
     Dosage: TABS

REACTIONS (4)
  - Fall [Unknown]
  - Haematoma [Unknown]
  - Oedema peripheral [Recovering/Resolving]
  - Pain in extremity [Recovering/Resolving]
